FAERS Safety Report 9680316 (Version 3)
Quarter: 2013Q4

REPORT INFORMATION
  Report Type: Report from Study
  Country: DE (occurrence: DE)
  Receive Date: 20131111
  Receipt Date: 20131204
  Transmission Date: 20140711
  Serious: Yes (Hospitalization)
  Sender: FDA-Public Use
  Company Number: DE-BRISTOL-MYERS SQUIBB COMPANY-19530401

PATIENT
  Age: 58 Year
  Sex: Male
  Weight: 77 kg

DRUGS (7)
  1. ERBITUX SOLN FOR INF [Suspect]
     Indication: COLORECTAL CANCER METASTATIC
     Dosage: 13-AUG-2013 -03-SEP-2013:(250 MG/M2,L IN 1 WK)?10-SEP-2013 -24-SEP-2013:(245 MG/M2,L IN 1 WK)
     Route: 042
     Dates: start: 20130813
  2. OXALIPLATIN [Suspect]
     Indication: COLORECTAL CANCER METASTATIC
     Route: 042
     Dates: start: 20130709
  3. ONCOFOLIC [Suspect]
     Indication: COLORECTAL CANCER METASTATIC
     Route: 042
     Dates: start: 20130709
  4. 5-FLUOROURACIL [Concomitant]
     Indication: COLORECTAL CANCER METASTATIC
     Route: 042
     Dates: start: 20130709
  5. CALCIUM FOLINATE [Concomitant]
     Indication: COLORECTAL CANCER METASTATIC
     Route: 042
     Dates: start: 20130709
  6. FENISTIL [Concomitant]
     Indication: PREMEDICATION
     Route: 042
     Dates: start: 20130813, end: 20131001
  7. RANITIDINE [Concomitant]
     Indication: ABDOMINAL DISCOMFORT
     Route: 042
     Dates: start: 20130813, end: 20131001

REACTIONS (1)
  - Diarrhoea [Unknown]
